FAERS Safety Report 9353311 (Version 3)
Quarter: 2013Q3

REPORT INFORMATION
  Report Type: Spontaneous
  Country: IT (occurrence: IT)
  Receive Date: 20130618
  Receipt Date: 20130730
  Transmission Date: 20140515
  Serious: Yes (Hospitalization)
  Sender: FDA-Public Use
  Company Number: IT-BRISTOL-MYERS SQUIBB COMPANY-18964916

PATIENT
  Age: 80 Year
  Sex: Male

DRUGS (9)
  1. COUMADIN TABS 5 MG [Suspect]
     Indication: ATRIAL FIBRILLATION
     Dosage: 1DF: 1 UNIT
     Route: 048
     Dates: start: 20100101, end: 20130409
  2. TICLOPIDINE HCL [Interacting]
     Indication: CAROTID ARTERIOSCLEROSIS
     Dosage: 1DF: 2 UNIT
     Route: 048
     Dates: start: 20100101, end: 20130409
  3. LANSOPRAZOLE [Concomitant]
     Route: 048
  4. ALLOPURINOL [Concomitant]
     Route: 048
  5. ALDACTONE [Concomitant]
     Dosage: 25 MG CAPS ?1DF: 1 UNIT
     Route: 048
  6. DOSTINEX [Concomitant]
     Dosage: 0.5 MG TAB
     Route: 048
  7. DIBASE [Concomitant]
     Dosage: 25.000 IU/2.5ML ORAL SOLUTION
     Route: 048
  8. EUTIROX [Concomitant]
     Dosage: 25 MCG TAB?1DF:1UNIT
     Route: 048
  9. LASIX [Concomitant]
     Dosage: 1DF:1UNIT?25 MG TAB
     Route: 048

REACTIONS (4)
  - Subdural haematoma [Recovering/Resolving]
  - Drug interaction [Unknown]
  - Fall [Unknown]
  - Craniocerebral injury [Unknown]
